FAERS Safety Report 4842338-X (Version None)
Quarter: 2005Q4

REPORT INFORMATION
  Report Type: 
  Country: None (occurrence: None)
  Receive Date: 20051128
  Receipt Date: 20051121
  Transmission Date: 20060501
  Serious: Yes (Congenital Anomaly)
  Sender: FDA-Public Use
  Company Number: 2005-01-2215

PATIENT
  Age: 1 Day
  Weight: 4 kg

DRUGS (2)
  1. REBETOL [Suspect]
     Indication: HEPATITIS C
     Dosage: 1200 MG ORAL
     Route: 048
     Dates: start: 20030827, end: 20040220
  2. PEG-INTRON [Suspect]
     Indication: HEPATITIS C
     Dosage: 150 MCG QWK SUBCUTANEOUS
     Route: 058
     Dates: start: 20030827, end: 20040220

REACTIONS (6)
  - CONGENITAL URETERIC ANOMALY [None]
  - DRUG EXPOSURE BEFORE PREGNANCY [None]
  - HORSESHOE KIDNEY [None]
  - KIDNEY MALFORMATION [None]
  - PELVIC KIDNEY [None]
  - UNEVALUABLE EVENT [None]
